FAERS Safety Report 16385230 (Version 2)
Quarter: 2019Q2

REPORT INFORMATION
  Report Type: Spontaneous
  Country: GR (occurrence: GR)
  Receive Date: 20190603
  Receipt Date: 20190610
  Transmission Date: 20190711
  Serious: Yes (Life-Threatening, Hospitalization)
  Sender: FDA-Public Use
  Company Number: GR-ABBVIE-19P-066-2802977-00

PATIENT
  Age: 35 Year
  Sex: Male

DRUGS (2)
  1. REMIFENTANIL [Suspect]
     Active Substance: REMIFENTANIL
     Indication: ANAESTHESIA
     Route: 051
  2. ULTANE [Suspect]
     Active Substance: SEVOFLURANE
     Indication: ANAESTHESIA
     Dosage: 1 MINIMUM ALVEOLAR CONCENTRATION
     Route: 055

REACTIONS (2)
  - Ischaemic cardiomyopathy [Recovering/Resolving]
  - Stress cardiomyopathy [Recovering/Resolving]
